FAERS Safety Report 10268607 (Version 1)
Quarter: 2014Q2

REPORT INFORMATION
  Report Type: Spontaneous
  Country: US (occurrence: None)
  Receive Date: 20140625
  Receipt Date: 20140625
  Transmission Date: 20141212
  Serious: Yes (Other)
  Sender: FDA-Public Use
  Company Number: US-JNJFOC-20140610289

PATIENT
  Age: 61 Year
  Sex: Male

DRUGS (1)
  1. DACOGEN (DECITABINE) LYOPHILIZED POWDER [Suspect]
     Indication: MYELOID LEUKAEMIA
     Dosage: 1 IN 28 DAY
     Route: 042

REACTIONS (4)
  - Clostridium difficile colitis [None]
  - Dyspnoea [None]
  - Hypoxia [None]
  - Acute promyelocytic leukaemia differentiation syndrome [None]
